FAERS Safety Report 7849439-2 (Version None)
Quarter: 2011Q4

REPORT INFORMATION
  Report Type: 
  Country: None (occurrence: None)
  Receive Date: 20111026
  Receipt Date: 20111013
  Transmission Date: 20120403
  Serious: Yes (Hospitalization, Other)
  Sender: FDA-Public Use
  Company Number: GB-BRISTOL-MYERS SQUIBB COMPANY-16185357

PATIENT
  Age: 54 Year
  Sex: Male

DRUGS (11)
  1. METFORMIN HCL [Suspect]
     Route: 065
  2. GLICLAZIDE [Suspect]
     Route: 065
  3. INSULIN GLARGINE [Suspect]
     Route: 065
  4. QUININE SULFATE [Suspect]
     Route: 065
  5. CANDESARTAN CILEXETIL [Suspect]
  6. ASPIRIN [Suspect]
     Route: 065
  7. LEVOTHYROXINE SODIUM [Suspect]
     Route: 065
  8. ROSUVASTATIN [Suspect]
     Route: 065
  9. EXENATIDE [Suspect]
     Dosage: 10 MCG 2 IN 1 D
     Route: 065
  10. PREGABALIN [Suspect]
     Route: 065
  11. AMITRIPTYLINE HCL [Suspect]
     Route: 065

REACTIONS (4)
  - MALAISE [None]
  - GASTROINTESTINAL DISORDER [None]
  - RENAL FAILURE ACUTE [None]
  - BODY MASS INDEX DECREASED [None]
